FAERS Safety Report 8814184 (Version 1)
Quarter: 2012Q4

REPORT INFORMATION
  Report Type: Report from Study
  Country: CA (occurrence: CA)
  Receive Date: 20120928
  Receipt Date: 20120928
  Transmission Date: 20130627
  Serious: Yes (Other)
  Sender: FDA-Public Use
  Company Number: CA-JNJFOC-20120908699

PATIENT
  Age: 46 Year
  Sex: Female
  Weight: 97.52 kg

DRUGS (5)
  1. REMICADE [Suspect]
     Indication: CROHN^S DISEASE
     Route: 042
     Dates: start: 20120817
  2. REMICADE [Suspect]
     Indication: CROHN^S DISEASE
     Route: 042
     Dates: start: 20120720
  3. REMICADE [Suspect]
     Indication: CROHN^S DISEASE
     Route: 042
     Dates: start: 20120706
  4. BENADRYL [Concomitant]
     Indication: PREMEDICATION
     Route: 048
  5. BENADRYL [Concomitant]
     Indication: PREMEDICATION
     Route: 042

REACTIONS (4)
  - Chest discomfort [Not Recovered/Not Resolved]
  - Ovarian cyst [Unknown]
  - Cervical cyst [Unknown]
  - Infusion related reaction [Not Recovered/Not Resolved]
